FAERS Safety Report 5615791-1 (Version None)
Quarter: 2008Q1

REPORT INFORMATION
  Report Type: 
  Country: None (occurrence: None)
  Receive Date: 20080206
  Receipt Date: 20080201
  Transmission Date: 20080703
  Serious: Yes (Other)
  Sender: FDA-Public Use
  Company Number: US-RANBAXY-2008US-12815

PATIENT

DRUGS (2)
  1. ISOTRETINOIN [Suspect]
     Indication: DRUG USE FOR UNKNOWN INDICATION
     Dosage: 40 MG,
     Route: 048
     Dates: start: 20070701, end: 20070701
  2. ISOTRETINOIN [Suspect]
     Dosage: 70 MG, QD
     Dates: start: 20070801, end: 20071221

REACTIONS (1)
  - UTERINE CERVIX ULCER [None]
